FAERS Safety Report 5283082-7 (Version None)
Quarter: 2007Q2

REPORT INFORMATION
  Report Type: 
  Country: None (occurrence: None)
  Receive Date: 20070402
  Receipt Date: 20070322
  Transmission Date: 20071010
  Serious: Yes (Hospitalization)
  Sender: FDA-Public Use
  Company Number: FR-AVENTIS-200711042FR

PATIENT
  Age: 74 Year
  Sex: Female

DRUGS (10)
  1. RIFADIN [Suspect]
     Route: 048
     Dates: start: 20061108, end: 20070129
  2. CIFLOX                             /00697201/ [Suspect]
     Route: 048
     Dates: start: 20061123, end: 20070129
  3. OFLOCET                            /00731801/ [Concomitant]
     Dates: start: 20061027, end: 20061108
  4. DI-ANTALVIC                        /00220901/ [Concomitant]
     Indication: DRUG USE FOR UNKNOWN INDICATION
     Route: 048
  5. LASILIX                            /00032601/ [Concomitant]
     Indication: DRUG USE FOR UNKNOWN INDICATION
  6. TRAMADOL HCL [Concomitant]
     Indication: DRUG USE FOR UNKNOWN INDICATION
  7. ORBENIN CAP [Concomitant]
  8. TRANSIPEG                          /00754501/ [Concomitant]
     Indication: DRUG USE FOR UNKNOWN INDICATION
     Route: 048
  9. VOLTAREN [Concomitant]
     Indication: DRUG USE FOR UNKNOWN INDICATION
     Route: 048
  10. OMEPRAZOLE [Concomitant]
     Indication: DRUG USE FOR UNKNOWN INDICATION
     Route: 048

REACTIONS (4)
  - BLOOD ALKALINE PHOSPHATASE INCREASED [None]
  - HEPATIC STEATOSIS [None]
  - HEPATOCELLULAR DAMAGE [None]
  - TRANSAMINASES INCREASED [None]
